FAERS Safety Report 7029567-4 (Version None)
Quarter: 2010Q4

REPORT INFORMATION
  Report Type: 
  Country: None (occurrence: None)
  Receive Date: 20101005
  Receipt Date: 20100928
  Transmission Date: 20110411
  Serious: Yes (Other)
  Sender: FDA-Public Use
  Company Number: FR-AMGEN-QUU441337

PATIENT
  Sex: Male
  Weight: 80 kg

DRUGS (5)
  1. NPLATE [Suspect]
     Indication: IDIOPATHIC THROMBOCYTOPENIC PURPURA
     Route: 058
     Dates: start: 20090101, end: 20100922
  2. COMBIVIR [Suspect]
     Indication: HIV INFECTION
     Route: 048
     Dates: start: 20100828
  3. PREZISTA [Concomitant]
     Route: 048
     Dates: start: 20100407
  4. NORVIR [Concomitant]
     Route: 048
     Dates: start: 20100407
  5. VIREAD [Concomitant]
     Route: 048
     Dates: start: 20100828

REACTIONS (2)
  - THERAPEUTIC RESPONSE DECREASED [None]
  - THROMBOCYTOPENIA [None]
